FAERS Safety Report 14037525 (Version 1)
Quarter: 2017Q4

REPORT INFORMATION
  Report Type: Spontaneous
  Country: US (occurrence: US)
  Receive Date: 20171003
  Receipt Date: 20171003
  Transmission Date: 20180321
  Serious: Yes (Disabling)
  Sender: FDA-Public Use
  Company Number: None

PATIENT
  Age: 47 Year
  Sex: Female
  Weight: 56.7 kg

DRUGS (6)
  1. GLUTATHIONE [Concomitant]
     Active Substance: GLUTATHIONE
  2. TRAZODONE [Concomitant]
     Active Substance: TRAZODONE HYDROCHLORIDE
  3. VITAMIN D [Concomitant]
     Active Substance: CHOLECALCIFEROL
  4. DUPIXENT [Suspect]
     Active Substance: DUPILUMAB
     Indication: DERMATITIS ATOPIC
     Dosage: QUANTITY:2 11;OTHER FREQUENCY:EVERY 2 WEEKS;?
     Route: 058
     Dates: start: 20170517, end: 20170925
  5. LUNESTA [Concomitant]
     Active Substance: ESZOPICLONE
  6. VITAMIN B12 [Concomitant]
     Active Substance: CYANOCOBALAMIN

REACTIONS (8)
  - Eye irritation [None]
  - Eye pain [None]
  - Skin exfoliation [None]
  - Madarosis [None]
  - Alopecia [None]
  - Blepharitis [None]
  - Lip pain [None]
  - Eye inflammation [None]

NARRATIVE: CASE EVENT DATE: 20170517
